FAERS Safety Report 9859101 (Version 2)
Quarter: 2014Q1

REPORT INFORMATION
  Report Type: Report from Study
  Country: US (occurrence: US)
  Receive Date: 20140131
  Receipt Date: 20140203
  Transmission Date: 20141002
  Serious: Yes (Hospitalization)
  Sender: FDA-Public Use
  Company Number: US-ABBVIE-14P-163-1194061-00

PATIENT
  Sex: Male
  Weight: 136.2 kg

DRUGS (10)
  1. HUMIRA [Suspect]
     Indication: PSORIATIC ARTHROPATHY
     Route: 058
     Dates: start: 201301, end: 201310
  2. BACLOFEN [Concomitant]
     Indication: MUSCLE SPASMS
  3. AMBIEN CR [Concomitant]
     Indication: INSOMNIA
  4. FOLIC ACID [Concomitant]
     Indication: VITAMIN SUPPLEMENTATION
  5. LEFLUNOMIDE [Concomitant]
     Indication: PSORIATIC ARTHROPATHY
  6. LISINOPRIL/HCTZ [Concomitant]
     Indication: HYPERTENSION
  7. OXYCODONE [Concomitant]
     Indication: PAIN
  8. PREDNISONE [Concomitant]
     Indication: PSORIATIC ARTHROPATHY
  9. ZOFRAN [Concomitant]
     Indication: NAUSEA
  10. PRILOSEC [Concomitant]
     Indication: GASTROOESOPHAGEAL REFLUX DISEASE

REACTIONS (1)
  - Sciatica [Recovered/Resolved]
